FAERS Safety Report 7915129-0 (Version None)
Quarter: 2011Q4

REPORT INFORMATION
  Report Type: 
  Country: None (occurrence: None)
  Receive Date: 20111115
  Receipt Date: 20111114
  Transmission Date: 20120403
  Serious: Yes (Hospitalization, Other)
  Sender: FDA-Public Use
  Company Number: US-ACTELION-A-NJ2011-56718

PATIENT

DRUGS (11)
  1. TRACLEER [Suspect]
     Indication: PULMONARY ARTERIAL HYPERTENSION
     Dosage: 62.5 MG, BID
     Route: 048
     Dates: start: 20110902
  2. ADVAIR DISKUS 100/50 [Concomitant]
  3. LEFLUNOMIDE [Concomitant]
  4. ALBUTEROL [Concomitant]
  5. HUMIRA [Concomitant]
  6. WARFARIN SODIUM [Concomitant]
  7. POTASSIUM [Concomitant]
  8. DIGOXIN [Concomitant]
  9. BUMEX [Concomitant]
  10. PREDNISONE [Concomitant]
  11. ADCIRCA [Concomitant]

REACTIONS (5)
  - BRADYCARDIA [None]
  - CARDIAC PACEMAKER INSERTION [None]
  - OEDEMA [None]
  - DYSPNOEA [None]
  - ENDOTRACHEAL INTUBATION [None]
